FAERS Safety Report 5144832-3 (Version None)
Quarter: 2006Q4

REPORT INFORMATION
  Report Type: 
  Country: None (occurrence: None)
  Receive Date: 20061107
  Receipt Date: 20061027
  Transmission Date: 20070319
  Serious: Yes (Hospitalization)
  Sender: FDA-Public Use
  Company Number: ES-JNJFOC-20061100441

PATIENT
  Sex: Male

DRUGS (5)
  1. RISPERDAL [Suspect]
     Route: 048
  2. RISPERDAL [Suspect]
     Route: 048
  3. RISPERDAL [Suspect]
     Indication: SCHIZOPHRENIA, PARANOID TYPE
     Route: 048
  4. PIPOTIAZINE PALMITATE [Concomitant]
     Indication: SCHIZOPHRENIA, PARANOID TYPE
     Route: 030
  5. LORAZEPAM [Concomitant]
     Indication: SCHIZOPHRENIA, PARANOID TYPE

REACTIONS (5)
  - DELIRIUM [None]
  - EXTRAPYRAMIDAL DISORDER [None]
  - IRRITABILITY [None]
  - NEOLOGISM [None]
  - THOUGHT BROADCASTING [None]
